FAERS Safety Report 22735473 (Version 6)
Quarter: 2023Q4

REPORT INFORMATION
  Report Type: Report from Study
  Country: US (occurrence: US)
  Receive Date: 20230721
  Receipt Date: 20231225
  Transmission Date: 20240110
  Serious: Yes (Other)
  Sender: FDA-Public Use
  Company Number: US-TAKEDA-2022TUS025790

PATIENT
  Sex: Female

DRUGS (3)
  1. MARIBAVIR [Suspect]
     Active Substance: MARIBAVIR
     Indication: Cytomegalovirus infection
     Dosage: 400 MILLIGRAM, BID
     Route: 048
     Dates: start: 20220412
  2. MARIBAVIR [Suspect]
     Active Substance: MARIBAVIR
     Indication: Post procedural infection
  3. TACROLIMUS [Suspect]
     Active Substance: TACROLIMUS
     Indication: Kidney transplant rejection
     Dosage: UNK
     Route: 065

REACTIONS (9)
  - Cytomegalovirus infection reactivation [Unknown]
  - Viral load increased [Recovering/Resolving]
  - Blood creatinine increased [Unknown]
  - Illness [Unknown]
  - Nasopharyngitis [Recovering/Resolving]
  - Taste disorder [Recovered/Resolved]
  - Tremor [Unknown]
  - Drug ineffective [Unknown]
  - Product dose omission issue [Unknown]
